FAERS Safety Report 8122764-6 (Version None)
Quarter: 2012Q1

REPORT INFORMATION
  Report Type: 
  Country: None (occurrence: None)
  Receive Date: 20120208
  Receipt Date: 20120130
  Transmission Date: 20120608
  Serious: No
  Sender: FDA-Public Use
  Company Number: US-BIOGENIDEC-2012BI003887

PATIENT
  Sex: Male

DRUGS (1)
  1. TYSABRI [Suspect]
     Indication: MULTIPLE SCLEROSIS
     Route: 042
     Dates: start: 20110804

REACTIONS (6)
  - JOINT STIFFNESS [None]
  - FALL [None]
  - VISION BLURRED [None]
  - ABASIA [None]
  - MUSCULOSKELETAL STIFFNESS [None]
  - WRONG DRUG ADMINISTERED [None]
